FAERS Safety Report 4568677-8 (Version None)
Quarter: 2005Q1

REPORT INFORMATION
  Report Type: 
  Country: None (occurrence: None)
  Receive Date: 20050202
  Receipt Date: 20050125
  Transmission Date: 20050727
  Serious: Yes (Life-Threatening, Disabling)
  Sender: FDA-Public Use
  Company Number: US-MERCK-0501USA04019

PATIENT
  Age: 40 Year
  Sex: Female

DRUGS (2)
  1. DECADRON [Suspect]
     Indication: BRAIN OPERATION
     Route: 048
     Dates: end: 20050101
  2. ZANTAC [Concomitant]
     Route: 065

REACTIONS (5)
  - FATIGUE [None]
  - FINGER DEFORMITY [None]
  - MUSCLE SPASMS [None]
  - MUSCULAR WEAKNESS [None]
  - OEDEMA PERIPHERAL [None]
